FAERS Safety Report 8542463-6 (Version None)
Quarter: 2012Q3

REPORT INFORMATION
  Report Type: 
  Country: None (occurrence: None)
  Receive Date: 20120726
  Receipt Date: 20111228
  Transmission Date: 20120928
  Serious: Yes (Other)
  Sender: FDA-Public Use
  Company Number: US-ASTRAZENECA-2009SE13392

PATIENT
  Age: 576 Month
  Sex: Female
  Weight: 83.5 kg

DRUGS (7)
  1. HYDROCHLOROTHIAZIDE [Concomitant]
     Indication: BLOOD PRESSURE
     Dates: start: 20050830
  2. PROZAC [Concomitant]
     Route: 048
     Dates: start: 20051213
  3. INH [Concomitant]
     Indication: TUBERCULOSIS
     Dosage: 900MG 2 WKLY
     Dates: start: 20050830
  4. SEROQUEL [Suspect]
     Indication: DEPRESSION
     Route: 048
     Dates: start: 20050801
  5. RISPERDAL [Concomitant]
     Dates: end: 20050929
  6. SEROQUEL [Suspect]
     Route: 048
     Dates: start: 20051213
  7. SEROQUEL [Suspect]
     Dosage: 50-300 MG HS RTC 2 WEEKS
     Route: 048
     Dates: start: 20050929

REACTIONS (3)
  - HYPOAESTHESIA [None]
  - DIABETIC KETOACIDOSIS [None]
  - GLUCOSE TOLERANCE IMPAIRED [None]
